FAERS Safety Report 22098721 (Version 8)
Quarter: 2024Q1

REPORT INFORMATION
  Report Type: Report from Study
  Country: JP (occurrence: JP)
  Receive Date: 20230315
  Receipt Date: 20240222
  Transmission Date: 20240410
  Serious: Yes (Other)
  Sender: FDA-Public Use
  Company Number: JP-ASTELLAS-2022JP004415

PATIENT
  Age: 73 Year
  Sex: Male

DRUGS (7)
  1. ENFORTUMAB VEDOTIN [Suspect]
     Active Substance: ENFORTUMAB VEDOTIN
     Indication: Transitional cell carcinoma
     Dosage: 1.25 MG/KG, ONCE WEEKLY, ADMINISTRATION FOR THREE WEEKS AND INTERRUPTION FOR A WEEK
     Route: 041
     Dates: start: 20220209, end: 20220209
  2. ENFORTUMAB VEDOTIN [Suspect]
     Active Substance: ENFORTUMAB VEDOTIN
     Dosage: 1.25 MG/KG, ONCE WEEKLY, ADMINISTRATION FOR THREE WEEKS AND INTERRUPTION FOR A WEEK
     Route: 041
     Dates: start: 20220224, end: 20220224
  3. ENFORTUMAB VEDOTIN [Suspect]
     Active Substance: ENFORTUMAB VEDOTIN
     Dosage: 1.25 MG/KG, ONCE WEEKLY, ADMINISTRATION FOR THREE WEEKS AND INTERRUPTION FOR A WEEK
     Route: 041
     Dates: start: 20220310, end: 20220324
  4. ENFORTUMAB VEDOTIN [Suspect]
     Active Substance: ENFORTUMAB VEDOTIN
     Dosage: 1.25 MG/KG, THRICE MONTHLY
     Route: 041
     Dates: start: 20221213, end: 20221213
  5. ENFORTUMAB VEDOTIN [Suspect]
     Active Substance: ENFORTUMAB VEDOTIN
     Dosage: 0.5 MG/KG, THRICE MONTHLY
     Route: 041
     Dates: start: 20230124, end: 20230124
  6. ENFORTUMAB VEDOTIN [Suspect]
     Active Substance: ENFORTUMAB VEDOTIN
     Dosage: 0.5 MG/KG, THRICE MONTHLY
     Route: 041
     Dates: start: 20230207, end: 20230207
  7. ENFORTUMAB VEDOTIN [Suspect]
     Active Substance: ENFORTUMAB VEDOTIN
     Dosage: 0.5 MG/KG, THRICE MONTHLY
     Route: 041
     Dates: start: 20230221

REACTIONS (3)
  - Cutaneous symptom [Recovered/Resolved]
  - Hepatic function abnormal [Recovered/Resolved]
  - Cutaneous symptom [Recovered/Resolved]

NARRATIVE: CASE EVENT DATE: 20220201
